FAERS Safety Report 14421259 (Version 1)
Quarter: 2018Q1

REPORT INFORMATION
  Report Type: Report from Study
  Country: US (occurrence: US)
  Receive Date: 20180122
  Receipt Date: 20180122
  Transmission Date: 20180509
  Serious: Yes (Death, Other)
  Sender: FDA-Public Use
  Company Number: US-GILEAD-2018-0316884

PATIENT
  Age: 76 Year
  Sex: Female

DRUGS (26)
  1. AMBRISENTAN [Suspect]
     Active Substance: AMBRISENTAN
     Indication: PULMONARY HYPERTENSION
     Dosage: 10 MG, QD
     Route: 065
     Dates: start: 20140917, end: 20180106
  2. SPIRONOLACTONE. [Concomitant]
     Active Substance: SPIRONOLACTONE
  3. GABAPENTIN. [Concomitant]
     Active Substance: GABAPENTIN
  4. MONTELUKAST [Concomitant]
     Active Substance: MONTELUKAST SODIUM
  5. FUROSEMIDE. [Concomitant]
     Active Substance: FUROSEMIDE
  6. VITAMIN K2                         /00357701/ [Concomitant]
  7. LEVOTHYROXIN [Concomitant]
     Active Substance: LEVOTHYROXINE
  8. PROBIOTIC                          /06395501/ [Concomitant]
     Active Substance: BIFIDOBACTERIUM ANIMALIS LACTIS
  9. CALCIUM [Concomitant]
     Active Substance: CALCIUM
  10. COENZYME Q10 [Concomitant]
     Active Substance: UBIDECARENONE
  11. ELIQUIS [Concomitant]
     Active Substance: APIXABAN
  12. MAGNESIUM [Concomitant]
     Active Substance: MAGNESIUM
  13. QVAR [Concomitant]
     Active Substance: BECLOMETHASONE DIPROPIONATE
  14. MULTI VITAMIN                      /08408501/ [Concomitant]
     Active Substance: VITAMINS
  15. ALBUTEROL                          /00139501/ [Concomitant]
     Active Substance: ALBUTEROL
  16. METOLAZONE. [Concomitant]
     Active Substance: METOLAZONE
  17. POTASSIUM [Concomitant]
     Active Substance: POTASSIUM
  18. BIOTIN [Concomitant]
     Active Substance: BIOTIN
  19. ADEMPAS [Concomitant]
     Active Substance: RIOCIGUAT
  20. LYSINE [Concomitant]
     Active Substance: LYSINE
  21. OMEGA 3                            /01333901/ [Concomitant]
     Active Substance: FISH OIL\TOCOPHEROL
  22. LIOTHYRONINE [Concomitant]
     Active Substance: LIOTHYRONINE
  23. LYRICA [Concomitant]
     Active Substance: PREGABALIN
  24. VITAMIN D                          /00107901/ [Concomitant]
     Active Substance: ERGOCALCIFEROL
  25. OMEPRAZOLE. [Concomitant]
     Active Substance: OMEPRAZOLE
  26. SELENIUM [Concomitant]
     Active Substance: SELENIUM

REACTIONS (3)
  - Pulmonary hypertension [Fatal]
  - Cardiac failure acute [Fatal]
  - Respiratory failure [Fatal]
